FAERS Safety Report 5563157-5 (Version None)
Quarter: 2007Q4

REPORT INFORMATION
  Report Type: 
  Country: None (occurrence: None)
  Receive Date: 20071217
  Receipt Date: 20071207
  Transmission Date: 20080405
  Serious: Yes (Life-Threatening, Hospitalization)
  Sender: FDA-Public Use
  Company Number: B0499792A

PATIENT
  Age: 28 Year
  Sex: Female

DRUGS (4)
  1. TAGAMET [Suspect]
     Dosage: 200MG PER DAY
     Route: 048
     Dates: start: 20070824, end: 20070824
  2. CEFAZOLIN [Suspect]
     Indication: DRUG USE FOR UNKNOWN INDICATION
     Dosage: 2G PER DAY
     Route: 042
     Dates: start: 20070824, end: 20070824
  3. SYNTOCINON [Suspect]
     Indication: DRUG USE FOR UNKNOWN INDICATION
     Dosage: 20IU PER DAY
     Route: 042
     Dates: start: 20070824, end: 20070824
  4. EPHEDRIN [Concomitant]

REACTIONS (5)
  - ANAPHYLACTIC SHOCK [None]
  - BRONCHOSPASM [None]
  - DRUG EXPOSURE DURING PREGNANCY [None]
  - RASH [None]
  - VOMITING [None]
